FAERS Safety Report 6911007-4 (Version None)
Quarter: 2010Q3

REPORT INFORMATION
  Report Type: 
  Country: None (occurrence: None)
  Receive Date: 20100806
  Receipt Date: 20100729
  Transmission Date: 20110219
  Serious: Yes (Other)
  Sender: FDA-Public Use
  Company Number: A0874033A

PATIENT
  Age: 84 Year

DRUGS (1)
  1. ARIXTRA [Suspect]
     Indication: PRODUCT USED FOR UNKNOWN INDICATION
     Route: 065

REACTIONS (2)
  - ACUTE MYOCARDIAL INFARCTION [None]
  - CARDIAC FAILURE [None]
